FAERS Safety Report 8243180-2 (Version None)
Quarter: 2012Q1

REPORT INFORMATION
  Report Type: 
  Country: None (occurrence: None)
  Receive Date: 20120329
  Receipt Date: 20120322
  Transmission Date: 20120608
  Serious: Yes (Hospitalization, Other)
  Sender: FDA-Public Use
  Company Number: DE-JNJFOC-20120307477

PATIENT
  Sex: Female

DRUGS (5)
  1. FUROSEMIDE [Concomitant]
  2. MOVIPREP [Concomitant]
  3. XARELTO [Suspect]
     Indication: DEEP VEIN THROMBOSIS
     Route: 048
     Dates: start: 20120302, end: 20120307
  4. LIORESAL [Concomitant]
  5. BACLOFEN [Concomitant]

REACTIONS (2)
  - RECTAL HAEMORRHAGE [None]
  - RECTAL ULCER [None]
